FAERS Safety Report 4512698-8 (Version None)
Quarter: 2004Q4

REPORT INFORMATION
  Report Type: 
  Country: None (occurrence: None)
  Receive Date: 20041012
  Receipt Date: 20040823
  Transmission Date: 20050328
  Serious: No
  Sender: FDA-Public Use
  Company Number: A03200402923

PATIENT
  Age: 50 Year
  Sex: Male

DRUGS (4)
  1. UROXATRAL [Suspect]
     Indication: BENIGN PROSTATIC HYPERPLASIA
     Dosage: 10 MG OD - ORAL
     Route: 048
     Dates: start: 20040801, end: 20040801
  2. AMLODIPINE BESYLATE [Concomitant]
  3. ALLOPURINOL [Concomitant]
  4. TRIAZOLAM [Concomitant]

REACTIONS (1)
  - DIARRHOEA [None]
